FAERS Safety Report 6865502-7 (Version None)
Quarter: 2010Q3

REPORT INFORMATION
  Report Type: 
  Country: None (occurrence: None)
  Receive Date: 20100721
  Receipt Date: 20080610
  Transmission Date: 20110219
  Serious: No
  Sender: FDA-Public Use
  Company Number: US-PFIZER INC-2008036006

PATIENT
  Sex: Female
  Weight: 109.09 kg

DRUGS (11)
  1. CHANTIX [Suspect]
     Indication: SMOKING CESSATION THERAPY
     Dates: start: 20071215, end: 20080201
  2. PREMARIN [Concomitant]
  3. METOPROLOL [Concomitant]
  4. PLAVIX [Concomitant]
  5. BENAZEPRIL HYDROCHLORIDE [Concomitant]
  6. SIMVASTATIN [Concomitant]
  7. HYDROCHLOROTHIAZIDE [Concomitant]
  8. ACETYLSALICYLIC ACID [Concomitant]
  9. CENTRUM [Concomitant]
  10. DICLOFENAC [Concomitant]
  11. TOPICORT [Concomitant]

REACTIONS (5)
  - ABNORMAL DREAMS [None]
  - DEPRESSION [None]
  - DYSGEUSIA [None]
  - INSOMNIA [None]
  - WEIGHT INCREASED [None]
